FAERS Safety Report 7941055-7 (Version None)
Quarter: 2011Q4

REPORT INFORMATION
  Report Type: 
  Country: None (occurrence: None)
  Receive Date: 20111128
  Receipt Date: 20111122
  Transmission Date: 20120403
  Serious: Yes (Other)
  Sender: FDA-Public Use
  Company Number: JP-PFIZER INC-2011267452

PATIENT
  Age: 58 Year
  Sex: Male
  Weight: 55.6 kg

DRUGS (6)
  1. VARENICLINE TARTRATE [Suspect]
     Indication: SMOKING CESSATION THERAPY
     Dosage: 0.5 MG, DAILY
     Route: 048
     Dates: start: 20110922, end: 20110928
  2. DIOVAN [Concomitant]
     Dosage: UNK
     Route: 048
  3. AMLODIPINE [Concomitant]
     Dosage: UNK
     Route: 048
  4. VARENICLINE TARTRATE [Suspect]
     Dosage: 2 MG, DAILY
     Route: 048
     Dates: start: 20110929, end: 20111029
  5. ALPRAZOLAM [Concomitant]
     Dosage: UNK, AS NEEDED
     Route: 048
  6. MIRADOL [Concomitant]
     Indication: ANTIDEPRESSANT THERAPY
     Dosage: UNK
     Route: 048

REACTIONS (6)
  - SYNCOPE [None]
  - ANGER [None]
  - AFFECT LABILITY [None]
  - ROAD TRAFFIC ACCIDENT [None]
  - SUICIDAL IDEATION [None]
  - SOMNOLENCE [None]
